FAERS Safety Report 24912939 (Version 1)
Quarter: 2025Q1

REPORT INFORMATION
  Report Type: Spontaneous
  Country: US (occurrence: US)
  Receive Date: 20250201
  Receipt Date: 20250201
  Transmission Date: 20250408
  Serious: No
  Sender: GLENMARK
  Company Number: US-GLENMARK PHARMACEUTICALS-2024GMK095919

PATIENT

DRUGS (2)
  1. RYALTRIS [Suspect]
     Active Substance: MOMETASONE FUROATE MONOHYDRATE\OLOPATADINE HYDROCHLORIDE
     Indication: Hypersensitivity
     Dosage: 2 DOSAGE FORM, BID (PRESCRIBED TO USE IT TWICE A DAY TWO SPRAYS IN EACH NOSTRIL)
     Route: 045
  2. RYALTRIS [Suspect]
     Active Substance: MOMETASONE FUROATE MONOHYDRATE\OLOPATADINE HYDROCHLORIDE
     Dosage: 2 DOSAGE FORM, BID (PRESCRIBED TO USE IT TWICE A DAY TWO SPRAYS IN EACH NOSTRIL)
     Route: 045

REACTIONS (5)
  - Product use in unapproved indication [Unknown]
  - Device defective [Unknown]
  - Product container seal issue [Unknown]
  - Device issue [Unknown]
  - Device breakage [Unknown]
